FAERS Safety Report 6268128-1 (Version None)
Quarter: 2009Q3

REPORT INFORMATION
  Report Type: 
  Country: None (occurrence: None)
  Receive Date: 20090715
  Receipt Date: 20071226
  Transmission Date: 20100115
  Serious: Yes (Other)
  Sender: FDA-Public Use
  Company Number: US-ASTRAZENECA-2006UW07974

PATIENT
  Age: 37 Year
  Sex: Female
  Weight: 90.3 kg

DRUGS (16)
  1. SEROQUEL [Suspect]
     Indication: SLEEP DISORDER
     Route: 048
     Dates: start: 20030101, end: 20060101
  2. SEROQUEL [Suspect]
     Indication: DEPRESSION
     Route: 048
     Dates: start: 20030101, end: 20060101
  3. SEROQUEL [Suspect]
     Route: 048
     Dates: start: 20050810
  4. SEROQUEL [Suspect]
     Route: 048
     Dates: start: 20050810
  5. PAXIL [Concomitant]
     Dates: start: 20040101
  6. TRAZODONE HCL [Concomitant]
     Dates: start: 20040101
  7. METHADONE HCL [Concomitant]
     Dates: start: 20050101
  8. TOPAMAX [Concomitant]
  9. ZONEGRAN [Concomitant]
     Indication: VASCULAR HEADACHE
     Dosage: STRENGTH- 100MG, 400MG  DOSE- 100 MG THREE TO FOUR AT NIGHT
  10. DILANTIN [Concomitant]
     Dosage: STRENGTH- 400MG, 500MG DOSE- 400-500MG DAILY
  11. ALPRAZOLAM [Concomitant]
     Dosage: STRENGTH- 1 MG, 3 MG DOSE-  1-3 MG DAILY
  12. PAXIL CR [Concomitant]
     Dosage: STRENGTH - 15 MG, 30 MG, 37.5 MG DOSE 15-45 MG DAILY
  13. AXERT [Concomitant]
     Indication: MIGRAINE
  14. KLONOPIN [Concomitant]
  15. LAMICTAL [Concomitant]
     Indication: VASCULAR HEADACHE
     Dosage: STRENGTH- 100MG, 150MG  DOSE-  100-300 MG DAILY
  16. TRICOR [Concomitant]

REACTIONS (8)
  - APPENDICITIS [None]
  - APPENDICITIS PERFORATED [None]
  - BLOOD CHOLESTEROL INCREASED [None]
  - COMPLEX PARTIAL SEIZURES [None]
  - CONVULSION [None]
  - DIABETES MELLITUS [None]
  - DRUG WITHDRAWAL CONVULSIONS [None]
  - OBESITY [None]
